FAERS Safety Report 14145398 (Version 1)
Quarter: 2017Q4

REPORT INFORMATION
  Report Type: Spontaneous
  Country: US (occurrence: None)
  Receive Date: 20171030
  Receipt Date: 20171030
  Transmission Date: 20180321
  Serious: No
  Sender: FDA-Public Use
  Company Number: None

PATIENT
  Age: 75 Year
  Sex: Male

DRUGS (1)
  1. RIVAROXABAN [Suspect]
     Active Substance: RIVAROXABAN
     Indication: ATRIAL FIBRILLATION
     Dates: start: 20150218, end: 20170210

REACTIONS (3)
  - Head injury [None]
  - Cerebral haemorrhage [None]
  - Cerebral haematoma [None]

NARRATIVE: CASE EVENT DATE: 20161001
